FAERS Safety Report 5886794-7 (Version None)
Quarter: 2008Q3

REPORT INFORMATION
  Report Type: 
  Country: None (occurrence: None)
  Receive Date: 20080917
  Receipt Date: 20080909
  Transmission Date: 20090109
  Serious: Yes (Hospitalization)
  Sender: FDA-Public Use
  Company Number: US-AMGEN-US306695

PATIENT
  Age: 54 Year
  Sex: Male
  Weight: 65.8 kg

DRUGS (20)
  1. PANITUMUMAB [Suspect]
     Indication: SQUAMOUS CELL CARCINOMA
     Dates: start: 20080415
  2. DOCETAXEL [Suspect]
     Dates: start: 20080415
  3. CISPLATIN [Suspect]
     Dates: start: 20080415
  4. FLUOROURACIL [Suspect]
     Dates: start: 20080415
  5. CARBOPLATIN [Suspect]
     Dates: start: 20080715
  6. ACYCLOVIR [Concomitant]
  7. ATIVAN [Concomitant]
  8. COLACE [Concomitant]
  9. COMPAZINE [Concomitant]
  10. DECADRON SRC [Concomitant]
  11. KAOPECTATE [Concomitant]
  12. LEVAQUIN [Concomitant]
  13. OMEPRAZOLE [Concomitant]
  14. OXYCODONE HCL [Concomitant]
  15. REGLAN [Concomitant]
  16. SENNA [Concomitant]
  17. SIMETHICONE [Concomitant]
  18. TYLENOL (CAPLET) [Concomitant]
  19. ZANTAC [Concomitant]
  20. ZOFRAN [Concomitant]

REACTIONS (3)
  - ASPIRATION [None]
  - DYSPHAGIA [None]
  - PNEUMONIA [None]
